FAERS Safety Report 13735575 (Version 1)
Quarter: 2017Q3

REPORT INFORMATION
  Report Type: Spontaneous
  Country: US (occurrence: US)
  Receive Date: 20170709
  Receipt Date: 20170709
  Transmission Date: 20171127
  Serious: Yes (Disabling)
  Sender: FDA-Public Use
  Company Number: None

PATIENT
  Age: 12 Year
  Sex: Male
  Weight: 32.85 kg

DRUGS (7)
  1. GENERIC PATADAY CETIRIZINE [Concomitant]
  2. FLUTICASONE. [Concomitant]
     Active Substance: FLUTICASONE
  3. QVAR BECLOMETHASONE DIPROPIONATE [Concomitant]
  4. GUANFACINE. [Concomitant]
     Active Substance: GUANFACINE
  5. SINGULAIR [Concomitant]
     Active Substance: MONTELUKAST SODIUM
  6. VYVANSE [Suspect]
     Active Substance: LISDEXAMFETAMINE DIMESYLATE
     Indication: ATTENTION DEFICIT/HYPERACTIVITY DISORDER
     Dosage: ?          OTHER STRENGTH:MG;QUANTITY:1 CAPSULE(S);?
     Route: 048
  7. OLOPATADINE. [Concomitant]
     Active Substance: OLOPATADINE

REACTIONS (2)
  - Yellow skin [None]
  - Raynaud^s phenomenon [None]

NARRATIVE: CASE EVENT DATE: 20170701
